FAERS Safety Report 17405704 (Version 1)
Quarter: 2020Q1

REPORT INFORMATION
  Report Type: Spontaneous
  Country: US (occurrence: US)
  Receive Date: 20200212
  Receipt Date: 20200212
  Transmission Date: 20200409
  Serious: Yes (Other)
  Sender: FDA-Public Use
  Company Number: US-CIPLA LTD.-2020US01062

PATIENT

DRUGS (1)
  1. ISOPROTERENOL. [Suspect]
     Active Substance: ISOPROTERENOL
     Indication: VENTRICULAR EXTRASYSTOLES
     Dosage: UNK

REACTIONS (4)
  - Shock [Unknown]
  - Product use in unapproved indication [Unknown]
  - Off label use [Unknown]
  - Atrial fibrillation [Unknown]
